FAERS Safety Report 18396196 (Version 1)
Quarter: 2020Q4

REPORT INFORMATION
  Report Type: Spontaneous
  Country: US (occurrence: US)
  Receive Date: 20201019
  Receipt Date: 20201019
  Transmission Date: 20210114
  Serious: No
  Sender: FDA-Public Use
  Company Number: US-SHIRE-US202034129

PATIENT
  Sex: Female

DRUGS (4)
  1. GATTEX [Suspect]
     Active Substance: TEDUGLUTIDE\WATER
     Indication: PRODUCT USED FOR UNKNOWN INDICATION
     Dosage: 0.27 UNIT DOSE, 1X/DAY:QD
     Route: 058
     Dates: start: 20191121
  2. GATTEX [Suspect]
     Active Substance: TEDUGLUTIDE\WATER
     Indication: PRODUCT USED FOR UNKNOWN INDICATION
     Dosage: 0.27 UNIT DOSE, 1X/DAY:QD
     Route: 058
     Dates: start: 20191121
  3. GATTEX [Suspect]
     Active Substance: TEDUGLUTIDE\WATER
     Indication: PRODUCT USED FOR UNKNOWN INDICATION
     Dosage: 0.27 UNIT DOSE, 1X/DAY:QD
     Route: 058
     Dates: start: 20191121
  4. GATTEX [Suspect]
     Active Substance: TEDUGLUTIDE\WATER
     Indication: PRODUCT USED FOR UNKNOWN INDICATION
     Dosage: 0.27 UNIT DOSE, 1X/DAY:QD
     Route: 058
     Dates: start: 20191121

REACTIONS (1)
  - Joint swelling [Unknown]
